FAERS Safety Report 10643105 (Version 1)
Quarter: 2014Q4

REPORT INFORMATION
  Report Type: Spontaneous
  Country: US (occurrence: None)
  Receive Date: 20141209
  Receipt Date: 20141209
  Transmission Date: 20150529
  Serious: Yes (Death)
  Sender: FDA-Public Use
  Company Number: None

PATIENT
  Age: 30 Year
  Sex: Female
  Weight: 84.5 kg

DRUGS (8)
  1. HUMIRA [Suspect]
     Active Substance: ADALIMUMAB
     Indication: CROHN^S DISEASE
     Dosage: 40 MG WEEKLY SQ STARTED 2007 COMPLIANCE UKNOWN
     Dates: start: 2007, end: 20141021
  2. NOVOLOG [Concomitant]
     Active Substance: INSULIN ASPART
  3. ASACOL [Concomitant]
     Active Substance: MESALAMINE
  4. 6MP [Concomitant]
     Active Substance: MERCAPTOPURINE
  5. LEVEMIR [Concomitant]
     Active Substance: INSULIN DETEMIR
  6. CLARITIN [Concomitant]
     Active Substance: LORATADINE
  7. DEXILANT [Concomitant]
     Active Substance: DEXLANSOPRAZOLE
  8. ALEVE [Concomitant]
     Active Substance: NAPROXEN SODIUM

REACTIONS (8)
  - Osteomyelitis [None]
  - Sepsis [None]
  - Mental status changes [None]
  - Influenza like illness [None]
  - Meningitis bacterial [None]
  - Lower respiratory tract infection [None]
  - Gastrointestinal haemorrhage [None]
  - Diarrhoea [None]

NARRATIVE: CASE EVENT DATE: 20141104
